FAERS Safety Report 22101003 (Version 12)
Quarter: 2023Q4

REPORT INFORMATION
  Report Type: Spontaneous
  Country: JP (occurrence: JP)
  Receive Date: 20230316
  Receipt Date: 20231227
  Transmission Date: 20240110
  Serious: Yes (Hospitalization)
  Sender: FDA-Public Use
  Company Number: JP-NBI-BJ202304586

PATIENT
  Age: 67 Year
  Sex: Female

DRUGS (3)
  1. OFEV [Suspect]
     Active Substance: NINTEDANIB
     Indication: Interstitial lung disease
     Route: 048
     Dates: start: 20230301, end: 20230331
  2. OFEV [Suspect]
     Active Substance: NINTEDANIB
     Route: 048
     Dates: start: 20230510, end: 20230911
  3. OFEV [Suspect]
     Active Substance: NINTEDANIB
     Route: 048
     Dates: start: 20230912

REACTIONS (11)
  - Cardiac failure congestive [Recovered/Resolved]
  - Mitral valve disease [Recovering/Resolving]
  - Blood test abnormal [Recovered/Resolved]
  - Pyrexia [Recovered/Resolved]
  - Oedema [Recovered/Resolved]
  - Cardiac function test abnormal [Recovered/Resolved]
  - Malaise [Not Recovered/Not Resolved]
  - Movement disorder [Not Recovered/Not Resolved]
  - Diarrhoea [Recovered/Resolved]
  - Lung opacity [Not Recovered/Not Resolved]
  - Anaemia [Not Recovered/Not Resolved]

NARRATIVE: CASE EVENT DATE: 20230528
